FAERS Safety Report 7356135-7 (Version None)
Quarter: 2011Q1

REPORT INFORMATION
  Report Type: 
  Country: None (occurrence: None)
  Receive Date: 20110316
  Receipt Date: 20110309
  Transmission Date: 20110831
  Serious: Yes (Hospitalization)
  Sender: FDA-Public Use
  Company Number: US-ELI_LILLY_AND_COMPANY-US201103003243

PATIENT
  Age: 66 Year
  Sex: Female

DRUGS (6)
  1. CYMBALTA [Suspect]
     Indication: DEPRESSION
     Dosage: 60 MG, DAILY (1/D)
  2. AMLODIPINE [Concomitant]
  3. GABAPENTIN [Concomitant]
  4. CYMBALTA [Suspect]
     Dosage: 60 MG DAILY
  5. LIPITOR [Concomitant]
  6. LISOPRIL [Concomitant]

REACTIONS (3)
  - SPINAL FUSION SURGERY [None]
  - SCOLIOSIS [None]
  - DRUG DISPENSING ERROR [None]
